FAERS Safety Report 19382033 (Version 7)
Quarter: 2022Q1

REPORT INFORMATION
  Report Type: Report from Study
  Country: CO (occurrence: CO)
  Receive Date: 20210607
  Receipt Date: 20220324
  Transmission Date: 20220423
  Serious: Yes (Other)
  Sender: FDA-Public Use
  Company Number: CO-TAKEDA-CO202026063

PATIENT
  Age: 20 Year
  Sex: Female
  Weight: 78 kg

DRUGS (8)
  1. ICATIBANT [Suspect]
     Active Substance: ICATIBANT ACETATE
     Indication: Hereditary angioedema
     Dosage: 30 MILLIGRAM, Q6HR
     Route: 058
     Dates: start: 20200810
  2. ICATIBANT [Suspect]
     Active Substance: ICATIBANT ACETATE
     Indication: Hereditary angioedema
     Dosage: 30 MILLIGRAM, Q6HR
     Route: 058
     Dates: start: 20200810
  3. ICATIBANT [Suspect]
     Active Substance: ICATIBANT ACETATE
     Dosage: 30 MILLIGRAM
     Route: 058
     Dates: start: 20200910
  4. ICATIBANT [Suspect]
     Active Substance: ICATIBANT ACETATE
     Dosage: 30 MILLIGRAM
     Route: 058
     Dates: start: 20200910
  5. ICATIBANT [Suspect]
     Active Substance: ICATIBANT ACETATE
     Dosage: 1 DOSAGE FORM, QD
     Route: 058
     Dates: start: 20200810
  6. ICATIBANT [Suspect]
     Active Substance: ICATIBANT ACETATE
     Dosage: 1 DOSAGE FORM, QD
     Route: 058
     Dates: start: 20200810
  7. TAKHZYRO [Suspect]
     Active Substance: LANADELUMAB-FLYO
     Indication: Hereditary angioedema
     Dosage: 300 MILLIGRAM, Q2 WEEKS
     Route: 058
     Dates: start: 20200810
  8. TAKHZYRO [Suspect]
     Active Substance: LANADELUMAB-FLYO
     Dosage: 300 MILLIGRAM, Q2 WEEKS
     Route: 058

REACTIONS (14)
  - Suspected COVID-19 [Recovering/Resolving]
  - Thermal burn [Recovering/Resolving]
  - Chills [Recovering/Resolving]
  - Weight increased [Unknown]
  - Weight decreased [Unknown]
  - Nasal congestion [Recovering/Resolving]
  - Hereditary angioedema [Recovered/Resolved]
  - Pruritus [Not Recovered/Not Resolved]
  - Headache [Not Recovered/Not Resolved]
  - Pyrexia [Recovering/Resolving]
  - Product temperature excursion issue [Unknown]
  - Prescription drug used without a prescription [Recovering/Resolving]
  - Product availability issue [Unknown]
  - Influenza [Not Recovered/Not Resolved]

NARRATIVE: CASE EVENT DATE: 20200810
